FAERS Safety Report 6210296-1 (Version None)
Quarter: 2009Q2

REPORT INFORMATION
  Report Type: 
  Country: None (occurrence: None)
  Receive Date: 20090529
  Receipt Date: 20090529
  Transmission Date: 20091009
  Serious: Yes (Other)
  Sender: FDA-Public Use
  Company Number: None

PATIENT
  Age: 11 Year
  Sex: Male
  Weight: 47.6277 kg

DRUGS (2)
  1. VIGAMOX [Suspect]
     Indication: CONJUNCTIVITIS INFECTIVE
     Dosage: 1 DROP IN BOTH EYES 2X DAILY OPHTHALMIC
     Route: 047
     Dates: start: 20090526, end: 20090528
  2. VIGAMOX [Suspect]
     Indication: INFECTION
     Dosage: 1 DROP IN BOTH EYES 2X DAILY OPHTHALMIC
     Route: 047
     Dates: start: 20090526, end: 20090528

REACTIONS (2)
  - OCULAR HYPERAEMIA [None]
  - RASH [None]
